FAERS Safety Report 9146948 (Version 1)
Quarter: 2013Q1

REPORT INFORMATION
  Report Type: Spontaneous
  Country: DK (occurrence: None)
  Receive Date: 20130219
  Receipt Date: 20130219
  Transmission Date: 20140127
  Serious: Yes (Death, Life-Threatening, Hospitalization)
  Sender: FDA-Public Use
  Company Number: FK201300416

PATIENT
  Age: 30 Year
  Sex: Female

DRUGS (10)
  1. IRINOTECAN [Suspect]
     Route: 042
     Dates: start: 20071011, end: 20081030
  2. CETUXIMAB [Suspect]
     Route: 042
     Dates: start: 20071011, end: 20081030
  3. BEVACIZUMAB [Suspect]
     Route: 042
     Dates: start: 20071011, end: 20081030
  4. OXYNORM(OXYCODONHYDROCHLORID) (OXYCODONHYDROCHLORID) [Concomitant]
  5. MORPHINE SULFATE(MORPHINE SULFATE) (MORPHINE SULFATE) [Concomitant]
  6. IRON (IRON) (IRON) [Concomitant]
  7. MULTIVITAMIN (MULTIVITAMIN) [Concomitant]
  8. FRAGMIN (DALTEPARINNATRIUM) (DALTEPARINNATRIUM) [Concomitant]
  9. PANODIL (PARACETAMOL) (PARACETAMOL) [Concomitant]
  10. OXYCONTIN (OXYCODONHYDROCHLORID) (OXYCODONHYDROCHLORID) [Concomitant]

REACTIONS (7)
  - Cerebral infarction [None]
  - Respiratory distress [None]
  - Erysipelas [None]
  - Fall [None]
  - Femoral neck fracture [None]
  - Cheyne-Stokes respiration [None]
  - Bone marrow failure [None]
